FAERS Safety Report 24526650 (Version 1)
Quarter: 2024Q4

REPORT INFORMATION
  Report Type: Other
  Country: NL (occurrence: NL)
  Receive Date: 20241021
  Receipt Date: 20241021
  Transmission Date: 20250114
  Serious: Yes (Other)
  Sender: GLENMARK
  Company Number: None

PATIENT

DRUGS (1)
  1. ROSUVASTATIN CALCIUM [Suspect]
     Active Substance: ROSUVASTATIN CALCIUM
     Indication: Blood cholesterol
     Dosage: 10 MILLIGRAM, OD (1 X PER DAG 1STUK)
     Route: 065
     Dates: start: 20240501, end: 20240912

REACTIONS (3)
  - Dermatitis bullous [Recovered/Resolved]
  - Stoma site discharge [Recovered/Resolved]
  - Pruritus [Recovered/Resolved]
